FAERS Safety Report 19160193 (Version 1)
Quarter: 2021Q2

REPORT INFORMATION
  Report Type: Report from Study
  Country: NL (occurrence: NL)
  Receive Date: 20210420
  Receipt Date: 20210420
  Transmission Date: 20210717
  Serious: Yes (Death)
  Sender: FDA-Public Use
  Company Number: NL-JNJFOC-20210429513

PATIENT
  Age: 50 Year
  Sex: Female

DRUGS (2)
  1. VENTAVIS [Suspect]
     Active Substance: ILOPROST
     Route: 055
     Dates: start: 20210119
  2. VENTAVIS [Suspect]
     Active Substance: ILOPROST
     Indication: PULMONARY ARTERIAL HYPERTENSION
     Dosage: 20MCG, 6?9 INHALATIONS A DAY
     Route: 055
     Dates: start: 20210108

REACTIONS (2)
  - Death [Fatal]
  - Drug dose omission by device [Unknown]

NARRATIVE: CASE EVENT DATE: 20210119
